FAERS Safety Report 15144770 (Version 1)
Quarter: 2018Q3

REPORT INFORMATION
  Report Type: Report from Study
  Country: FR (occurrence: FR)
  Receive Date: 20180713
  Receipt Date: 20180713
  Transmission Date: 20181010
  Serious: Yes (Other)
  Sender: FDA-Public Use
  Company Number: FR-JAZZ-2018-FR-010798

PATIENT

DRUGS (2)
  1. DEFITELIO [Suspect]
     Active Substance: DEFIBROTIDE SODIUM
     Indication: VENOOCCLUSIVE DISEASE
     Dosage: 29.6 MG/KG, QD
     Dates: start: 20170902, end: 20170922
  2. DEFITELIO [Suspect]
     Active Substance: DEFIBROTIDE SODIUM
     Dosage: 19.75 MG/KG, QD
     Dates: start: 20171031, end: 20171121

REACTIONS (3)
  - Pulmonary alveolar haemorrhage [Unknown]
  - Therapy cessation [Unknown]
  - Embolism [Unknown]

NARRATIVE: CASE EVENT DATE: 20170914
